FAERS Safety Report 6604113-5 (Version None)
Quarter: 2010Q1

REPORT INFORMATION
  Report Type: 
  Country: None (occurrence: None)
  Receive Date: 20100226
  Receipt Date: 20090527
  Transmission Date: 20100710
  Serious: No
  Sender: FDA-Public Use
  Company Number: A0786440A

PATIENT
  Age: 59 Year
  Sex: Female

DRUGS (4)
  1. LAMICTAL CD [Suspect]
     Indication: BIPOLAR DISORDER
     Dosage: 25MG PER DAY
     Route: 048
     Dates: start: 20090513, end: 20090525
  2. CYMBALTA [Concomitant]
  3. LEVOTHYROXINE [Concomitant]
  4. CYTOMEL [Concomitant]

REACTIONS (4)
  - ASTHENIA [None]
  - DEPRESSION [None]
  - HUNGER [None]
  - IRRITABILITY [None]
